FAERS Safety Report 9760174 (Version 1)
Quarter: 2013Q4

REPORT INFORMATION
  Report Type: Spontaneous
  Country: US (occurrence: US)
  Receive Date: 20131216
  Receipt Date: 20131216
  Transmission Date: 20140711
  Serious: No
  Sender: FDA-Public Use
  Company Number: US-BAYER-2013-149671

PATIENT
  Sex: Male

DRUGS (1)
  1. CIPRO 10% ORAL SUSPENSION [Suspect]

REACTIONS (1)
  - Incorrect route of drug administration [None]
